FAERS Safety Report 6800649-2 (Version None)
Quarter: 2010Q2

REPORT INFORMATION
  Report Type: 
  Country: None (occurrence: None)
  Receive Date: 20100625
  Receipt Date: 20100625
  Transmission Date: 20101027
  Serious: Yes (Other)
  Sender: FDA-Public Use
  Company Number: None

PATIENT
  Age: 55 Year
  Sex: Female
  Weight: 101.1521 kg

DRUGS (2)
  1. LEVAQUIN [Suspect]
     Indication: BRONCHITIS
     Dosage: 1/DAY
     Dates: start: 20100301, end: 20100305
  2. LEVAQUIN [Suspect]
     Indication: NASOPHARYNGITIS
     Dosage: 1/DAY
     Dates: start: 20100301, end: 20100305

REACTIONS (11)
  - ABASIA [None]
  - ARTHRITIS [None]
  - BRONCHITIS [None]
  - DRUG DOSE OMISSION [None]
  - IMPAIRED HEALING [None]
  - MYOSITIS [None]
  - NASOPHARYNGITIS [None]
  - PAIN IN EXTREMITY [None]
  - SWELLING [None]
  - TENDON DISORDER [None]
  - TENDON PAIN [None]
